FAERS Safety Report 4263863-9 (Version None)
Quarter: 2004Q1

REPORT INFORMATION
  Report Type: 
  Country: None (occurrence: None)
  Receive Date: 20040106
  Receipt Date: 20031229
  Transmission Date: 20041129
  Serious: Yes (Other)
  Sender: FDA-Public Use
  Company Number: PHBS2003GR14514

PATIENT
  Age: 52 Year
  Sex: Male

DRUGS (3)
  1. STARLIX [Suspect]
     Route: 048
  2. ZEFFIX [Concomitant]
     Indication: HEPATITIS
  3. INTERFERON [Concomitant]
     Indication: HEPATITIS

REACTIONS (3)
  - BLOOD ALKALINE PHOSPHATASE INCREASED [None]
  - GAMMA-GLUTAMYLTRANSFERASE INCREASED [None]
  - HEPATIC ENZYME INCREASED [None]
